FAERS Safety Report 7527439-X (Version None)
Quarter: 2011Q2

REPORT INFORMATION
  Report Type: 
  Country: None (occurrence: None)
  Receive Date: 20110603
  Receipt Date: 20110519
  Transmission Date: 20111010
  Serious: Yes (Other)
  Sender: FDA-Public Use
  Company Number: JPI-P-015173

PATIENT
  Age: 63 Year
  Sex: Female
  Weight: 60.3284 kg

DRUGS (4)
  1. XYREM [Suspect]
     Indication: CATAPLEXY
     Dosage: ORAL ; 7.7 GM (3.85 GM,2 IN 1 D),ORAL
     Route: 048
     Dates: start: 20090401
  2. 3 ASTHMA INHALERS [Concomitant]
  3. 3 NASAL SPRAYS [Concomitant]
  4. MULTIPLE UNSPECIFIED MEDICATIONS [Concomitant]

REACTIONS (1)
  - BREAST CANCER FEMALE [None]
